FAERS Safety Report 8814350 (Version 1)
Quarter: 2012Q4

REPORT INFORMATION
  Report Type: Spontaneous
  Country: US (occurrence: None)
  Receive Date: 20120925
  Receipt Date: 20120925
  Transmission Date: 20130627
  Serious: Yes (Death)
  Sender: FDA-Public Use
  Company Number: UTC-023224

PATIENT
  Age: 87 Year
  Sex: Male
  Weight: 87.27 kg

DRUGS (2)
  1. REMODULIN [Suspect]
     Indication: PRIMARY PULMONARY HYPERTENSION
     Dosage: 23.04 ug/kg (0.016 ug/kg, 1 in 1 min), subcutaneous
     Route: 058
     Dates: start: 20111105
  2. REVATIO [Concomitant]

REACTIONS (1)
  - Death [None]
